FAERS Safety Report 12310014 (Version 1)
Quarter: 2016Q2

REPORT INFORMATION
  Report Type: Spontaneous
  Country: US (occurrence: US)
  Receive Date: 20160427
  Receipt Date: 20160427
  Transmission Date: 20160815
  Serious: Yes (Hospitalization, Other)
  Sender: FDA-Public Use
  Company Number: US-GLAXOSMITHKLINE-US2016058248

PATIENT
  Sex: Female

DRUGS (2)
  1. COREG CR [Suspect]
     Active Substance: CARVEDILOL PHOSPHATE
     Indication: CARDIAC FAILURE CONGESTIVE
     Dosage: 40 MG ORALLY DAILY
     Route: 048
  2. QUINAPRIL. [Concomitant]
     Active Substance: QUINAPRIL

REACTIONS (4)
  - Intestinal obstruction [Recovering/Resolving]
  - Hip fracture [Recovered/Resolved]
  - Sarcoma [Not Recovered/Not Resolved]
  - Fall [Recovered/Resolved]

NARRATIVE: CASE EVENT DATE: 2015
